FAERS Safety Report 4391833-9 (Version None)
Quarter: 2004Q3

REPORT INFORMATION
  Report Type: 
  Country: None (occurrence: None)
  Receive Date: 20040701
  Receipt Date: 20040610
  Transmission Date: 20050211
  Serious: Yes (Other)
  Sender: FDA-Public Use
  Company Number: USA040669774

PATIENT
  Age: 52 Year
  Sex: Female
  Weight: 39 kg

DRUGS (1)
  1. FORTEO [Suspect]
     Indication: OSTEOPOROSIS
     Dosage: 20 UG/1 DAY
     Dates: start: 20030901

REACTIONS (3)
  - BODY HEIGHT DECREASED [None]
  - BONE DENSITY DECREASED [None]
  - PHARMACEUTICAL PRODUCT COMPLAINT [None]
